FAERS Safety Report 4413821-6 (Version None)
Quarter: 2004Q3

REPORT INFORMATION
  Report Type: 
  Country: None (occurrence: None)
  Receive Date: 20040802
  Receipt Date: 20040802
  Transmission Date: 20050211
  Serious: Yes (Life-Threatening, Other)
  Sender: FDA-Public Use
  Company Number: None

PATIENT
  Sex: Male
  Weight: 79.3795 kg

DRUGS (2)
  1. ZOLOFT [Suspect]
     Indication: MAJOR DEPRESSION
     Dosage: DAILY
     Dates: start: 19960101, end: 19960101
  2. PROZAC [Suspect]
     Dosage: DAILY
     Dates: start: 19970101, end: 19990101

REACTIONS (2)
  - AGGRESSION [None]
  - SUICIDE ATTEMPT [None]
